FAERS Safety Report 24746492 (Version 1)
Quarter: 2024Q4

REPORT INFORMATION
  Report Type: Spontaneous
  Country: US (occurrence: US)
  Receive Date: 20241218
  Receipt Date: 20241218
  Transmission Date: 20250115
  Serious: Yes (Other)
  Sender: STRIDES
  Company Number: US-STRIDES ARCOLAB LIMITED-2024SP016178

PATIENT
  Age: 34 Year
  Sex: Female

DRUGS (1)
  1. MYCOPHENOLATE MOFETIL [Suspect]
     Active Substance: MYCOPHENOLATE MOFETIL
     Indication: Chorioretinitis
     Dosage: UNK
     Route: 065

REACTIONS (5)
  - Vitreous disorder [Unknown]
  - Retinal disorder [Unknown]
  - Lymphoma [Unknown]
  - Drug resistance [Unknown]
  - Off label use [Unknown]
